FAERS Safety Report 8589248 (Version 2)
Quarter: 2013Q4

REPORT INFORMATION
  Report Type: Spontaneous
  Country: US (occurrence: US)
  Receive Date: 20120531
  Receipt Date: 20131118
  Transmission Date: 20140711
  Serious: No
  Sender: FDA-Public Use
  Company Number: US-ASTRAZENECA-2012SE33992

PATIENT
  Age: 84 Year
  Sex: Female

DRUGS (6)
  1. SEROQUEL [Suspect]
     Indication: MAJOR DEPRESSION
     Dosage: GENERIC
     Route: 048
  2. SEROQUEL [Suspect]
     Indication: MAJOR DEPRESSION
     Route: 048
  3. MORPHINE [Suspect]
     Route: 065
  4. HCTZ [Suspect]
     Route: 065
  5. DOXYCYCLINE [Suspect]
     Route: 065
  6. REMERON [Concomitant]
     Indication: MAJOR DEPRESSION
     Dosage: 45 MG

REACTIONS (5)
  - Abdominal discomfort [Recovered/Resolved]
  - Adverse drug reaction [Unknown]
  - Drug intolerance [Unknown]
  - Drug hypersensitivity [Unknown]
  - Intentional drug misuse [Unknown]
